FAERS Safety Report 7878658-4 (Version None)
Quarter: 2011Q4

REPORT INFORMATION
  Report Type: 
  Country: None (occurrence: None)
  Receive Date: 20111018
  Receipt Date: 20110817
  Transmission Date: 20120403
  Serious: No
  Sender: FDA-Public Use
  Company Number: 2011P1008379

PATIENT
  Age: 34 Year
  Sex: Female

DRUGS (5)
  1. ZANAFLEX [Concomitant]
  2. FENTANYL-75 [Suspect]
     Indication: PAIN
     Dosage: 1 PATCH;Q48H;TDER
     Route: 062
     Dates: start: 20090101
  3. PREDNISONE [Concomitant]
  4. LASIX [Concomitant]
  5. PERCOCET [Concomitant]

REACTIONS (6)
  - FEELING JITTERY [None]
  - APHAGIA [None]
  - INFLUENZA [None]
  - INCORRECT PRODUCT STORAGE [None]
  - DRUG WITHDRAWAL SYNDROME [None]
  - TREMOR [None]
